FAERS Safety Report 14183558 (Version 3)
Quarter: 2022Q1

REPORT INFORMATION
  Report Type: Report from Study
  Country: US (occurrence: None)
  Receive Date: 20171113
  Receipt Date: 20220223
  Transmission Date: 20220423
  Serious: Yes (Hospitalization)
  Sender: FDA-Public Use
  Company Number: US-ROCHE-2020098

PATIENT
  Age: 71 Year
  Sex: Male
  Weight: 81.6 kg

DRUGS (1)
  1. ATEZOLIZUMAB [Suspect]
     Active Substance: ATEZOLIZUMAB
     Indication: Non-small cell lung cancer
     Dosage: DATE OF MOST RECENT DOSE PRIOR TO EVENT ONSET ON 11/OCT/2017
     Route: 042
     Dates: start: 20170922

REACTIONS (3)
  - Sepsis [Recovered/Resolved]
  - Pneumonitis [Recovered/Resolved]
  - Lichenoid keratosis [Recovering/Resolving]

NARRATIVE: CASE EVENT DATE: 20171028
